FAERS Safety Report 24971239 (Version 1)
Quarter: 2025Q1

REPORT INFORMATION
  Report Type: Spontaneous
  Country: US (occurrence: US)
  Receive Date: 20250214
  Receipt Date: 20250214
  Transmission Date: 20250409
  Serious: Yes (Hospitalization)
  Sender: BRISTOL-MYERS SQUIBB COMPANY
  Company Number: US-BRISTOL-MYERS SQUIBB COMPANY-2025-020805

PATIENT
  Age: 95 Year
  Sex: Female

DRUGS (1)
  1. LENALIDOMIDE [Suspect]
     Active Substance: LENALIDOMIDE
     Indication: Myelodysplastic syndrome
     Dosage: TAKE 1 CAPSULE BY MOUTH EVERY DAY FOR 28 DAYS. DO NOT BREAK, CHEW OR OPEN
     Route: 048

REACTIONS (1)
  - Blood potassium increased [Recovered/Resolved]
